FAERS Safety Report 8401253-5 (Version None)
Quarter: 2012Q2

REPORT INFORMATION
  Report Type: 
  Country: None (occurrence: None)
  Receive Date: 20120525
  Receipt Date: 20100705
  Transmission Date: 20120825
  Serious: Yes (Life-Threatening, Hospitalization)
  Sender: FDA-Public Use
  Company Number: 010353

PATIENT
  Age: 2 Year
  Sex: Female

DRUGS (7)
  1. ALKERAN [Concomitant]
  2. LEUKINE [Concomitant]
  3. BUSULFAN [Suspect]
     Dosage: 16 MG/KG  52 MG, QD, INTRAVENOUS
     Route: 042
     Dates: start: 20100605, end: 20100608
  4. TEGRETOL [Concomitant]
  5. DEURSIL (URSODEOLYCHOLIC ACID) [Concomitant]
  6. SOLDESAM (DE AMETHASONE SODIUM PHOSPHATE) [Concomitant]
  7. ZOFRAN [Concomitant]

REACTIONS (7)
  - HAEMOGLOBIN DECREASED [None]
  - PLATELET COUNT DECREASED [None]
  - BRADYCARDIA [None]
  - VENOOCCLUSIVE DISEASE [None]
  - ASPARTATE AMINOTRANSFERASE INCREASED [None]
  - ALANINE AMINOTRANSFERASE INCREASED [None]
  - BLOOD THROMBOPLASTIN DECREASED [None]
